FAERS Safety Report 23659139 (Version 1)
Quarter: 2024Q1

REPORT INFORMATION
  Report Type: Spontaneous
  Country: RU (occurrence: RU)
  Receive Date: 20240321
  Receipt Date: 20240321
  Transmission Date: 20240410
  Serious: Yes (Other)
  Sender: FDA-Public Use
  Company Number: RU-AMERICAN REGENT INC-2024001044

PATIENT
  Age: 65 Year
  Sex: Female

DRUGS (3)
  1. FERINJECT [Suspect]
     Active Substance: FERRIC CARBOXYMALTOSE
     Indication: Anaemia
     Dosage: 1000 MILLIGRAM, 1 IN 1 TOTAL
     Dates: start: 202305, end: 202305
  2. PREDNISOLONE [Concomitant]
     Active Substance: PREDNISOLONE
     Indication: Rheumatoid arthritis
     Dosage: UNK
     Route: 065
  3. FOLIC ACID [Concomitant]
     Active Substance: FOLIC ACID
     Indication: Rheumatoid arthritis
     Dosage: UNK
     Route: 065

REACTIONS (9)
  - Blood test abnormal [Recovered/Resolved]
  - Toxicity to various agents [Recovered/Resolved]
  - Nephrosclerosis [Not Recovered/Not Resolved]
  - Blood pressure increased [Recovered/Resolved]
  - Hot flush [Recovered/Resolved]
  - Abdominal pain [Recovered/Resolved]
  - Diarrhoea [Recovered/Resolved]
  - Microalbuminuria [Recovered/Resolved]
  - Nausea [Recovered/Resolved]

NARRATIVE: CASE EVENT DATE: 20230101
